FAERS Safety Report 6547933-8 (Version None)
Quarter: 2010Q1

REPORT INFORMATION
  Report Type: 
  Country: None (occurrence: None)
  Receive Date: 20100124
  Receipt Date: 20091124
  Transmission Date: 20100710
  Serious: No
  Sender: FDA-Public Use
  Company Number: CA-ALEXION-A200901012

PATIENT
  Sex: Male

DRUGS (2)
  1. SOLIRIS [Suspect]
     Indication: PAROXYSMAL NOCTURNAL HAEMOGLOBINURIA
     Dosage: 600 MG, UNK
     Route: 042
     Dates: start: 20091119
  2. ASPIRIN [Concomitant]
     Dosage: 81 MG, QD
     Route: 048

REACTIONS (4)
  - HEADACHE [None]
  - OROPHARYNGEAL PAIN [None]
  - PAIN [None]
  - RHINORRHOEA [None]
